FAERS Safety Report 10510232 (Version 1)
Quarter: 2014Q4

REPORT INFORMATION
  Report Type: Spontaneous
  Country: US (occurrence: None)
  Receive Date: 20141008
  Receipt Date: 20141008
  Transmission Date: 20150528
  Serious: Yes (Hospitalization)
  Sender: FDA-Public Use
  Company Number: FK201403881

PATIENT
  Age: 80 Year
  Sex: Female
  Weight: 132 kg

DRUGS (4)
  1. CELECOXIB. [Suspect]
     Active Substance: CELECOXIB
     Indication: ADENOCARCINOMA OF COLON
     Dates: start: 20140311, end: 20140614
  2. LEUCOVORIN CALCIUM. [Suspect]
     Active Substance: LEUCOVORIN CALCIUM
     Indication: ADENOCARCINOMA OF COLON
     Dosage: (NOT OTHERWISE SPECIFIED)
     Route: 042
  3. ELOXATIN [Suspect]
     Active Substance: OXALIPLATIN
     Indication: ADENOCARCINOMA OF COLON
     Route: 042
     Dates: start: 20140311, end: 20140520
  4. FLUOROURACIL. [Suspect]
     Active Substance: FLUOROURACIL
     Indication: ADENOCARCINOMA OF COLON
     Route: 042
     Dates: start: 20140311

REACTIONS (7)
  - Asthenia [None]
  - Aphasia [None]
  - Fall [None]
  - Cerebral ischaemia [None]
  - Mental status changes [None]
  - Cerebral artery embolism [None]
  - Muscular weakness [None]

NARRATIVE: CASE EVENT DATE: 20140614
